FAERS Safety Report 9530329 (Version 1)
Quarter: 2013Q3

REPORT INFORMATION
  Report Type: Spontaneous
  Country: DE (occurrence: DE)
  Receive Date: 20130917
  Receipt Date: 20130917
  Transmission Date: 20140515
  Serious: Yes (Hospitalization, Other)
  Sender: FDA-Public Use
  Company Number: DE-MYLANLABS-2013S1020028

PATIENT
  Age: 1 Day
  Sex: Female
  Weight: 2.39 kg

DRUGS (4)
  1. SERTRALINE [Suspect]
     Route: 064
  2. PAROXAT [Concomitant]
     Route: 064
  3. BETAMETHASONE [Concomitant]
     Indication: MATERNAL THERAPY TO ENHANCE FOETAL LUNG MATURITY
     Route: 064
  4. INSULIN [Concomitant]
     Route: 064

REACTIONS (4)
  - Exposure during pregnancy [Recovered/Resolved]
  - Premature baby [Recovered/Resolved]
  - Bradycardia neonatal [Recovered/Resolved]
  - Neonatal respiratory distress syndrome [Recovered/Resolved]
